FAERS Safety Report 6832255-8 (Version None)
Quarter: 2010Q3

REPORT INFORMATION
  Report Type: 
  Country: None (occurrence: None)
  Receive Date: 20100707
  Receipt Date: 20100630
  Transmission Date: 20110219
  Serious: Yes (Death)
  Sender: FDA-Public Use
  Company Number: 2010US002607

PATIENT
  Age: 9 Year
  Sex: Female

DRUGS (5)
  1. PROGRAF [Suspect]
     Indication: HEART TRANSPLANT
     Dosage: 3 MG
     Dates: start: 20081120
  2. PREDNISOLONE [Concomitant]
  3. MYCOPHENOLATE MOFETIL [Concomitant]
  4. FUROSEMIDA (FUROSEMIDE) [Concomitant]
  5. AZATHIOPRINE [Concomitant]

REACTIONS (1)
  - COMPLICATIONS OF TRANSPLANTED HEART [None]
